FAERS Safety Report 7712527-5 (Version None)
Quarter: 2011Q3

REPORT INFORMATION
  Report Type: 
  Country: None (occurrence: None)
  Receive Date: 20110826
  Receipt Date: 20110816
  Transmission Date: 20111222
  Serious: No
  Sender: FDA-Public Use
  Company Number: DE-UCBSA-039318

PATIENT
  Sex: Male

DRUGS (2)
  1. KEPPRA [Suspect]
  2. TOPAMAX [Concomitant]

REACTIONS (2)
  - PANCYTOPENIA [None]
  - LEUKOPENIA [None]
